FAERS Safety Report 12764501 (Version 1)
Quarter: 2016Q3

REPORT INFORMATION
  Report Type: Spontaneous
  Country: US (occurrence: US)
  Receive Date: 20160920
  Receipt Date: 20160920
  Transmission Date: 20161109
  Serious: No
  Sender: FDA-Public Use
  Company Number: US-ALLERGAN-1612243US

PATIENT
  Age: 47 Year
  Weight: 72.56 kg

DRUGS (2)
  1. PROAIR HFA [Concomitant]
     Active Substance: ALBUTEROL SULFATE
     Indication: ASTHMA
     Dosage: RPN
     Route: 055
  2. LASTACAFT [Suspect]
     Active Substance: ALCAFTADINE
     Indication: EYE IRRITATION
     Dosage: 1-2 GTT BID
     Route: 047
     Dates: start: 20160111, end: 20160113

REACTIONS (3)
  - Eye irritation [Recovered/Resolved]
  - Intentional product misuse [Unknown]
  - Ocular hyperaemia [Recovered/Resolved]

NARRATIVE: CASE EVENT DATE: 20160111
